FAERS Safety Report 5116318-3 (Version None)
Quarter: 2006Q3

REPORT INFORMATION
  Report Type: 
  Country: None (occurrence: None)
  Receive Date: 20060927
  Receipt Date: 20060920
  Transmission Date: 20061208
  Serious: Yes (Hospitalization, Disabling)
  Sender: FDA-Public Use
  Company Number: US-MERCK-0609USA04378

PATIENT
  Age: 76 Year
  Sex: Male

DRUGS (2)
  1. INVANZ [Suspect]
     Indication: ABDOMINAL ABSCESS
     Route: 042
     Dates: start: 20060908, end: 20060914
  2. TOPROL-XL [Concomitant]
     Route: 048

REACTIONS (5)
  - AGITATION [None]
  - CONFUSIONAL STATE [None]
  - EATING DISORDER [None]
  - HALLUCINATION [None]
  - MENTAL STATUS CHANGES [None]
